FAERS Safety Report 21194871 (Version 1)
Quarter: 2022Q3

REPORT INFORMATION
  Report Type: Spontaneous
  Country: FR (occurrence: FR)
  Receive Date: 20220810
  Receipt Date: 20220810
  Transmission Date: 20221027
  Serious: Yes (Death, Hospitalization, Other)
  Sender: FDA-Public Use
  Company Number: FR-SUN PHARMACEUTICAL INDUSTRIES LTD-2022RR-348379

PATIENT
  Age: 68 Year
  Sex: Male
  Weight: 96 kg

DRUGS (4)
  1. GEMCITABINE [Suspect]
     Active Substance: GEMCITABINE
     Indication: Angiocentric lymphoma
     Dosage: 2000 MILLIGRAM, 1DOSE/1CYCLIC
     Route: 040
     Dates: start: 20220705, end: 20220705
  2. DEXAMETHASONE [Suspect]
     Active Substance: DEXAMETHASONE
     Indication: Angiocentric lymphoma
     Dosage: 40 MILLIGRAM, DAILY
     Route: 048
     Dates: start: 20220705, end: 20220708
  3. METHOTREXATE [Suspect]
     Active Substance: METHOTREXATE
     Indication: Angiocentric lymphoma
     Dosage: 6000 MILLIGRAM, 1DOSE/1CYCLIC
     Route: 040
     Dates: start: 20220705, end: 20220705
  4. ASPARAGINASE [Suspect]
     Active Substance: ASPARAGINASE
     Indication: Angiocentric lymphoma
     Dosage: 12000 INTERNATIONAL UNIT, QOD
     Route: 040
     Dates: start: 20220707, end: 20220713

REACTIONS (2)
  - Pancreatitis acute [Fatal]
  - Haematochezia [Not Recovered/Not Resolved]

NARRATIVE: CASE EVENT DATE: 20220703
